FAERS Safety Report 9129716 (Version 1)
Quarter: 2013Q1

REPORT INFORMATION
  Report Type: Spontaneous
  Country: US (occurrence: US)
  Receive Date: 20130228
  Receipt Date: 20130228
  Transmission Date: 20140127
  Serious: No
  Sender: FDA-Public Use
  Company Number: US-TEVA-388779USA

PATIENT
  Sex: Female
  Weight: 6.81 kg

DRUGS (1)
  1. PROGLYCEM [Suspect]
     Dosage: 114 ML DAILY;
     Route: 048

REACTIONS (5)
  - Hypertrichosis [Not Recovered/Not Resolved]
  - Irritability [Not Recovered/Not Resolved]
  - Headache [Not Recovered/Not Resolved]
  - Nausea [Not Recovered/Not Resolved]
  - Hair colour changes [Not Recovered/Not Resolved]
